FAERS Safety Report 4617502-5 (Version None)
Quarter: 2005Q1

REPORT INFORMATION
  Report Type: 
  Country: None (occurrence: None)
  Receive Date: 20050324
  Receipt Date: 20041208
  Transmission Date: 20050727
  Serious: Yes (Hospitalization)
  Sender: FDA-Public Use
  Company Number: 200419450US

PATIENT
  Age: 14 Year
  Sex: Female

DRUGS (2)
  1. LANTUS [Suspect]
     Indication: DIABETES MELLITUS INSULIN-DEPENDENT
     Dosage: DOSE UNIT: UNITS
  2. HUMALOG [Suspect]
     Dosage: DOSE: UNK

REACTIONS (3)
  - APPENDICECTOMY [None]
  - HYPERGLYCAEMIA [None]
  - MEDICATION ERROR [None]
